FAERS Safety Report 5873932-5 (Version None)
Quarter: 2008Q3

REPORT INFORMATION
  Report Type: 
  Country: None (occurrence: None)
  Receive Date: 20080908
  Receipt Date: 20080827
  Transmission Date: 20090109
  Serious: Yes (Hospitalization)
  Sender: FDA-Public Use
  Company Number: US-AVENTIS-200815634US

PATIENT
  Age: 82 Year
  Sex: Female

DRUGS (1)
  1. LASIX [Suspect]
     Dosage: DOSE: UNK

REACTIONS (8)
  - BLOOD CHOLESTEROL ABNORMAL [None]
  - BLOOD PRESSURE ABNORMAL [None]
  - CEREBRAL HAEMORRHAGE [None]
  - HALLUCINATION, AUDITORY [None]
  - SEASONAL ALLERGY [None]
  - SURGERY [None]
  - VULVOVAGINAL BURNING SENSATION [None]
  - VULVOVAGINAL PRURITUS [None]
